FAERS Safety Report 8080466-9 (Version None)
Quarter: 2012Q1

REPORT INFORMATION
  Report Type: 
  Country: None (occurrence: None)
  Receive Date: 20120130
  Receipt Date: 20120124
  Transmission Date: 20120608
  Serious: Yes (Hospitalization, Other)
  Sender: FDA-Public Use
  Company Number: US-PFIZER INC-2012019914

PATIENT
  Sex: Male
  Weight: 76.644 kg

DRUGS (4)
  1. LYRICA [Suspect]
     Indication: NEURALGIA
     Dosage: 100 MG, 1X/DAY
     Route: 048
     Dates: start: 20060101
  2. LYRICA [Suspect]
     Dosage: 400 MG, 1X/DAY
     Route: 048
     Dates: end: 20110101
  3. LYRICA [Suspect]
     Dosage: 300 MG, 1X/DAY
     Route: 048
  4. MIRTAZAPINE [Concomitant]
     Dosage: 30 MG, 1X/DAY

REACTIONS (9)
  - NAUSEA [None]
  - FATIGUE [None]
  - VOMITING [None]
  - GASTRIC DISORDER [None]
  - ABDOMINAL PAIN [None]
  - DIARRHOEA [None]
  - MALAISE [None]
  - CHILLS [None]
  - HYPERTENSION [None]
